FAERS Safety Report 8228055-7 (Version None)
Quarter: 2012Q1

REPORT INFORMATION
  Report Type: 
  Country: None (occurrence: None)
  Receive Date: 20120322
  Receipt Date: 20120110
  Transmission Date: 20120608
  Serious: No
  Sender: FDA-Public Use
  Company Number: US-BRISTOL-MYERS SQUIBB COMPANY-16341711

PATIENT
  Age: 72 Year
  Sex: Male

DRUGS (7)
  1. CARBOPLATIN [Concomitant]
  2. GLUCOTROL [Concomitant]
  3. BENADRYL [Concomitant]
  4. GLUCOPHAGE [Concomitant]
  5. PACLITAXEL [Concomitant]
  6. ERBITUX [Suspect]
  7. HYZAAR [Concomitant]

REACTIONS (4)
  - FEELING COLD [None]
  - DERMATITIS ACNEIFORM [None]
  - FATIGUE [None]
  - ALOPECIA [None]
